FAERS Safety Report 19958581 (Version 1)
Quarter: 2021Q4

REPORT INFORMATION
  Report Type: Report from Study
  Country: GR (occurrence: GR)
  Receive Date: 20211015
  Receipt Date: 20211015
  Transmission Date: 20220304
  Serious: Yes (Life-Threatening, Other)
  Sender: FDA-Public Use
  Company Number: GR-MYLANLABS-2021M1072410

PATIENT
  Age: 90 Year
  Sex: Female
  Weight: 73.5 kg

DRUGS (8)
  1. HULIO [Suspect]
     Active Substance: ADALIMUMAB-FKJP
     Indication: Psoriasis
     Dosage: 40 MILLIGRAM, BIWEEKLY
     Route: 058
     Dates: start: 20210414, end: 20211009
  2. ELIQUIS [Concomitant]
     Active Substance: APIXABAN
     Indication: Ischaemic stroke
     Dosage: 2.5 MILLIGRAM, BID
     Route: 048
     Dates: start: 20170801
  3. ELIQUIS [Concomitant]
     Active Substance: APIXABAN
     Indication: Atrial fibrillation
  4. BISOPROLOL FUMARATE [Concomitant]
     Active Substance: BISOPROLOL FUMARATE
     Indication: Hypertension
     Dosage: 10 MILLIGRAM, BID
     Route: 048
     Dates: start: 20170801
  5. DIGOXIN [Concomitant]
     Active Substance: DIGOXIN
     Indication: Atrial fibrillation
     Dosage: 0.125 MILLIGRAM, QD
     Route: 048
     Dates: start: 20170801
  6. FUROSEMIDE [Concomitant]
     Active Substance: FUROSEMIDE
     Indication: Hypertension
     Dosage: 40 MILLIGRAM, QD
     Route: 048
     Dates: start: 20170801
  7. GLICLAZIDE [Concomitant]
     Active Substance: GLICLAZIDE
     Indication: Diabetes mellitus
     Dosage: 90 MILLIGRAM, QD
     Route: 048
     Dates: start: 20201231
  8. ETIAPIN [Concomitant]
     Indication: Anxiety
     Dosage: 25 MILLIGRAM, BID
     Route: 048
     Dates: start: 20201130

REACTIONS (5)
  - General physical health deterioration [Unknown]
  - Decreased appetite [Unknown]
  - Urine output decreased [Unknown]
  - Depressed level of consciousness [Unknown]
  - Communication disorder [Unknown]

NARRATIVE: CASE EVENT DATE: 20211008
